FAERS Safety Report 20182028 (Version 1)
Quarter: 2021Q4

REPORT INFORMATION
  Report Type: Spontaneous
  Country: CN (occurrence: CN)
  Receive Date: 20211214
  Receipt Date: 20211214
  Transmission Date: 20220303
  Serious: Yes (Other)
  Sender: FDA-Public Use
  Company Number: CN-GUERBET-CN-20210339

PATIENT
  Age: 71 Year
  Sex: Male

DRUGS (4)
  1. LIPIODOL [Suspect]
     Active Substance: ETHIODIZED OIL
     Indication: Transcatheter arterial chemoembolisation
     Route: 013
     Dates: start: 20130729, end: 20130729
  2. FLUOROURACIL [Suspect]
     Active Substance: FLUOROURACIL
     Indication: Transcatheter arterial chemoembolisation
     Route: 013
     Dates: start: 20130729, end: 20130729
  3. OXALIPLATIN [Suspect]
     Active Substance: OXALIPLATIN
     Indication: Transcatheter arterial chemoembolisation
     Route: 013
     Dates: start: 20130729, end: 20130729
  4. MITOMYCIN C [Suspect]
     Active Substance: MITOMYCIN
     Indication: Transcatheter arterial chemoembolisation
     Route: 013
     Dates: start: 20130729, end: 20130729

REACTIONS (2)
  - Liver abscess [Recovered/Resolved]
  - Post embolisation syndrome [Unknown]

NARRATIVE: CASE EVENT DATE: 20130701
